FAERS Safety Report 6445024-8 (Version None)
Quarter: 2009Q4

REPORT INFORMATION
  Report Type: 
  Country: None (occurrence: None)
  Receive Date: 20091118
  Receipt Date: 20091116
  Transmission Date: 20100525
  Serious: Yes (Hospitalization, Other)
  Sender: FDA-Public Use
  Company Number: US-MERCK-0807USA00763

PATIENT
  Age: 74 Year
  Sex: Female
  Weight: 59 kg

DRUGS (2)
  1. FOSAMAX [Suspect]
     Indication: OSTEOPOROSIS
     Route: 048
     Dates: start: 19960212, end: 20070521
  2. FOSAMAX [Suspect]
     Indication: RHEUMATOID ARTHRITIS
     Route: 048
     Dates: start: 19960212, end: 20070521

REACTIONS (45)
  - ACTINOMYCOSIS [None]
  - ALLERGIC SINUSITIS [None]
  - ANAEMIA OF CHRONIC DISEASE [None]
  - ARTHRALGIA [None]
  - BONE DENSITY DECREASED [None]
  - BONE FRAGMENTATION [None]
  - BRONCHITIS CHRONIC [None]
  - BURSITIS [None]
  - CARDIAC MURMUR [None]
  - CONTUSION [None]
  - DENTAL CARIES [None]
  - DEPRESSION [None]
  - DIVERTICULUM [None]
  - ERYTHEMA [None]
  - EXOSTOSIS [None]
  - FALL [None]
  - GALLBLADDER DISORDER [None]
  - GASTROOESOPHAGEAL REFLUX DISEASE [None]
  - GINGIVAL DISORDER [None]
  - HERPES ZOSTER [None]
  - IMPAIRED HEALING [None]
  - INTERVERTEBRAL DISC DEGENERATION [None]
  - INTERVERTEBRAL DISC PROTRUSION [None]
  - JOINT SWELLING [None]
  - LOBAR PNEUMONIA [None]
  - LOOSE TOOTH [None]
  - MACULAR DEGENERATION [None]
  - ORAL DISORDER [None]
  - ORAL INFECTION [None]
  - ORAL PAIN [None]
  - OSTEOMYELITIS [None]
  - PAIN [None]
  - PLEURISY [None]
  - POLYP [None]
  - REPRODUCTIVE TRACT DISORDER [None]
  - SCOLIOSIS [None]
  - SICCA SYNDROME [None]
  - SKIN LACERATION [None]
  - TOOTH ABSCESS [None]
  - TOOTH DISORDER [None]
  - TOOTH FRACTURE [None]
  - TOOTHACHE [None]
  - UPPER RESPIRATORY TRACT INFECTION [None]
  - VISUAL IMPAIRMENT [None]
  - WEIGHT DECREASED [None]
